FAERS Safety Report 12947347 (Version 2)
Quarter: 2017Q1

REPORT INFORMATION
  Report Type: Report from Study
  Country: JP (occurrence: JP)
  Receive Date: 20161116
  Receipt Date: 20170306
  Transmission Date: 20170428
  Serious: Yes (Hospitalization)
  Sender: FDA-Public Use
  Company Number: JP-JNJFOC-20161113554

PATIENT
  Age: 46 Year
  Sex: Male

DRUGS (130)
  1. RISPERDAL [Concomitant]
     Active Substance: RISPERIDONE
     Indication: PANIC DISORDER
     Route: 048
     Dates: start: 20160304
  2. MYSLEE [Concomitant]
     Active Substance: ZOLPIDEM TARTRATE
     Indication: DEPRESSION
     Route: 048
     Dates: start: 20130401, end: 20160331
  3. MIYA-BM [Concomitant]
     Active Substance: CLOSTRIDIUM BUTYRICUM SPORES STRAIN M-55
     Indication: PYREXIA
     Route: 065
     Dates: start: 20160218, end: 20160320
  4. ZYPREXA [Concomitant]
     Active Substance: OLANZAPINE
     Indication: PANIC DISORDER
     Route: 048
     Dates: start: 20160219, end: 20160302
  5. SOLYUGEN G [Concomitant]
     Indication: FLUID REPLACEMENT
     Route: 065
     Dates: start: 20160201, end: 20160201
  6. TAKEPRON [Concomitant]
     Active Substance: LANSOPRAZOLE
     Indication: GASTRITIS PROPHYLAXIS
     Route: 065
     Dates: start: 20160204, end: 20160218
  7. ISOTONIC SODIUM CHLORIDE SOLUTION [Concomitant]
     Active Substance: SODIUM CHLORIDE
     Indication: SEDATION
     Route: 065
     Dates: start: 20160205, end: 20160214
  8. ISOTONIC SODIUM CHLORIDE SOLUTION [Concomitant]
     Active Substance: SODIUM CHLORIDE
     Indication: ECZEMA
     Route: 065
     Dates: start: 20160101, end: 20160102
  9. ISOTONIC SODIUM CHLORIDE SOLUTION [Concomitant]
     Active Substance: SODIUM CHLORIDE
     Indication: ECZEMA
     Route: 065
     Dates: start: 20160130, end: 20160131
  10. VANCOMYCIN [Concomitant]
     Active Substance: VANCOMYCIN
     Indication: MENINGITIS BACTERIAL
     Route: 065
     Dates: start: 20160209, end: 20160214
  11. INTELENCE [Suspect]
     Active Substance: ETRAVIRINE
     Indication: ACQUIRED IMMUNODEFICIENCY SYNDROME
     Route: 048
     Dates: start: 20160307
  12. TRUVADA [Concomitant]
     Active Substance: EMTRICITABINE\TENOFOVIR DISOPROXIL FUMARATE
     Indication: ACQUIRED IMMUNODEFICIENCY SYNDROME
     Route: 048
     Dates: start: 20160307
  13. GASTER [Concomitant]
     Active Substance: FAMOTIDINE
     Indication: GASTRITIS PROPHYLAXIS
     Route: 048
     Dates: start: 20160302, end: 20160318
  14. SOLACET F [Concomitant]
     Indication: FLUID REPLACEMENT
     Route: 065
     Dates: start: 20160201, end: 20160203
  15. SOLACET F [Concomitant]
     Indication: FLUID REPLACEMENT
     Route: 065
     Dates: start: 20160302, end: 20160307
  16. SOLYUGEN G [Concomitant]
     Indication: FLUID REPLACEMENT
     Route: 065
     Dates: start: 20160127, end: 20160203
  17. VIDARABINE [Concomitant]
     Active Substance: VIDARABINE
     Indication: PROPHYLAXIS
     Route: 065
     Dates: start: 20160202, end: 20160208
  18. GLUCOSE [Concomitant]
     Active Substance: DEXTROSE
     Indication: CYTOMEGALOVIRUS INFECTION
     Route: 065
     Dates: start: 20160210, end: 20160220
  19. GLUCOSE [Concomitant]
     Active Substance: DEXTROSE
     Indication: CYTOMEGALOVIRUS INFECTION
     Route: 065
     Dates: start: 20160209, end: 20160209
  20. POLARAMINE [Concomitant]
     Active Substance: DEXCHLORPHENIRAMINE MALEATE
     Indication: ECZEMA
     Route: 065
     Dates: start: 20160301, end: 20160301
  21. SOLU-MEDROL [Concomitant]
     Active Substance: METHYLPREDNISOLONE SODIUM SUCCINATE
     Indication: ECZEMA
     Route: 065
     Dates: start: 20160325, end: 20160325
  22. ISOTONIC SODIUM CHLORIDE SOLUTION [Concomitant]
     Active Substance: SODIUM CHLORIDE
     Indication: PNEUMONIA ASPIRATION
     Route: 065
     Dates: start: 20160201, end: 20160204
  23. ISOTONIC SODIUM CHLORIDE SOLUTION [Concomitant]
     Active Substance: SODIUM CHLORIDE
     Indication: ECZEMA
     Route: 065
     Dates: start: 20160130, end: 20160130
  24. ISOTONIC SODIUM CHLORIDE SOLUTION [Concomitant]
     Active Substance: SODIUM CHLORIDE
     Indication: MENINGITIS BACTERIAL
     Route: 065
     Dates: start: 20160101, end: 20160102
  25. ACICLOVIR [Suspect]
     Active Substance: ACYCLOVIR
     Indication: HERPES ZOSTER
     Route: 065
     Dates: start: 20140708, end: 20140710
  26. FENTANYL. [Concomitant]
     Active Substance: FENTANYL
     Indication: SEDATION
     Route: 065
     Dates: start: 20160205, end: 20160205
  27. SEISHOKU [Concomitant]
     Active Substance: SODIUM CHLORIDE
     Indication: DEPRESSION
     Route: 065
     Dates: start: 20160204, end: 20160218
  28. LEXOTAN [Concomitant]
     Active Substance: BROMAZEPAM
     Indication: PANIC DISORDER
     Route: 048
     Dates: start: 20150421, end: 20160202
  29. WASSER V [Concomitant]
     Indication: MALAISE
     Route: 048
     Dates: start: 20150407, end: 20160202
  30. PROPOFOL. [Concomitant]
     Active Substance: PROPOFOL
     Indication: SEDATION
     Route: 065
     Dates: start: 20160204, end: 20160205
  31. METHYLPREDNISOLONE. [Concomitant]
     Active Substance: METHYLPREDNISOLONE
     Indication: ECZEMA
     Route: 065
     Dates: start: 20160306, end: 20160306
  32. VOLVIX [Concomitant]
     Indication: VITAMIN SUPPLEMENTATION
     Route: 065
     Dates: start: 20160208, end: 20160310
  33. ISOTONIC SODIUM CHLORIDE SOLUTION [Concomitant]
     Active Substance: SODIUM CHLORIDE
     Indication: ECZEMA
     Route: 065
     Dates: start: 20160205, end: 20160208
  34. ISOTONIC SODIUM CHLORIDE SOLUTION [Concomitant]
     Active Substance: SODIUM CHLORIDE
     Indication: PROPHYLAXIS
     Route: 065
     Dates: start: 20160202, end: 20160208
  35. ISOTONIC SODIUM CHLORIDE SOLUTION [Concomitant]
     Active Substance: SODIUM CHLORIDE
     Indication: PROPHYLAXIS
     Route: 065
     Dates: start: 20160205, end: 20160214
  36. ISOTONIC SODIUM CHLORIDE SOLUTION [Concomitant]
     Active Substance: SODIUM CHLORIDE
     Indication: MENINGITIS BACTERIAL
     Route: 065
     Dates: start: 20160202, end: 20160208
  37. GLYCERIN AND FRUCTOSE [Concomitant]
     Indication: MENINGITIS BACTERIAL
     Route: 065
     Dates: start: 20160205, end: 20160205
  38. VANCOMYCIN [Concomitant]
     Active Substance: VANCOMYCIN
     Indication: MENINGITIS BACTERIAL
     Route: 065
     Dates: start: 20160208, end: 20160208
  39. VENOGLOBULIN IH [Concomitant]
     Active Substance: HUMAN IMMUNOGLOBULIN G
     Indication: PNEUMONIA ASPIRATION
     Route: 065
     Dates: start: 20160204, end: 20160205
  40. TRUVADA [Concomitant]
     Active Substance: EMTRICITABINE\TENOFOVIR DISOPROXIL FUMARATE
     Indication: ACQUIRED IMMUNODEFICIENCY SYNDROME
     Route: 048
     Dates: start: 20090620, end: 20160202
  41. DIFLUCAN [Concomitant]
     Active Substance: FLUCONAZOLE
     Indication: PROPHYLAXIS
     Route: 065
     Dates: start: 20160218, end: 20160310
  42. LOXONIN [Concomitant]
     Active Substance: LOXOPROFEN SODIUM
     Indication: PYREXIA
     Route: 065
     Dates: start: 20150421
  43. SOLU-CORTEF [Concomitant]
     Active Substance: HYDROCORTISONE SODIUM SUCCINATE
     Indication: ECZEMA
     Route: 065
     Dates: start: 20160130, end: 20160130
  44. SOLDEM 3A [Concomitant]
     Active Substance: CARBOHYDRATES\POTASSIUM CHLORIDE\SODIUM CHLORIDE\SODIUM LACTATE
     Indication: FLUID REPLACEMENT
     Route: 065
     Dates: start: 20160204, end: 20160207
  45. BFLUID [Concomitant]
     Active Substance: AMINO ACIDS\DEXTROSE\ELECTROLYTES NOS\VITAMINS
     Indication: FLUID REPLACEMENT
     Route: 065
     Dates: start: 20160207, end: 20160208
  46. FULCALIQ [Concomitant]
     Active Substance: AMINO ACIDS\CARBOHYDRATES\ELECTROLYTES NOS\VITAMINS
     Indication: FLUID REPLACEMENT
     Route: 065
     Dates: start: 20160208, end: 20160310
  47. FULCALIQ [Concomitant]
     Active Substance: AMINO ACIDS\CARBOHYDRATES\ELECTROLYTES NOS\VITAMINS
     Indication: FLUID REPLACEMENT
     Route: 065
     Dates: start: 20160208, end: 20160301
  48. FULCALIQ [Concomitant]
     Active Substance: AMINO ACIDS\CARBOHYDRATES\ELECTROLYTES NOS\VITAMINS
     Indication: FLUID REPLACEMENT
     Route: 065
     Dates: start: 20160311, end: 20160311
  49. POLARAMINE [Concomitant]
     Active Substance: DEXCHLORPHENIRAMINE MALEATE
     Indication: ECZEMA
     Route: 065
     Dates: start: 20160317, end: 20160325
  50. ISOTONIC SODIUM CHLORIDE SOLUTION [Concomitant]
     Active Substance: SODIUM CHLORIDE
     Indication: PNEUMONIA ASPIRATION
     Route: 065
     Dates: start: 20160130, end: 20160131
  51. ISOTONIC SODIUM CHLORIDE SOLUTION [Concomitant]
     Active Substance: SODIUM CHLORIDE
     Indication: PNEUMONIA ASPIRATION
     Route: 065
     Dates: start: 20160101, end: 20160102
  52. ISOTONIC SODIUM CHLORIDE SOLUTION [Concomitant]
     Active Substance: SODIUM CHLORIDE
     Indication: PNEUMONIA ASPIRATION
     Route: 065
     Dates: start: 20160202, end: 20160208
  53. ISOTONIC SODIUM CHLORIDE SOLUTION [Concomitant]
     Active Substance: SODIUM CHLORIDE
     Indication: PROPHYLAXIS
     Route: 065
     Dates: start: 20160130, end: 20160131
  54. ISOTONIC SODIUM CHLORIDE SOLUTION [Concomitant]
     Active Substance: SODIUM CHLORIDE
     Indication: PROPHYLAXIS
     Route: 065
     Dates: start: 20160201, end: 20160204
  55. ISOTONIC SODIUM CHLORIDE SOLUTION [Concomitant]
     Active Substance: SODIUM CHLORIDE
     Indication: MENINGITIS BACTERIAL
     Route: 065
     Dates: start: 20160205, end: 20160214
  56. GLUCOSE [Concomitant]
     Active Substance: DEXTROSE
     Indication: PANCREATITIS
     Route: 065
     Dates: start: 20160208, end: 20160302
  57. PREZISTA [Concomitant]
     Active Substance: DARUNAVIR ETHANOLATE
     Indication: ACQUIRED IMMUNODEFICIENCY SYNDROME
     Route: 048
     Dates: start: 20100515, end: 20140228
  58. FENTANYL. [Concomitant]
     Active Substance: FENTANYL
     Indication: SEDATION
     Route: 065
     Dates: start: 20160205, end: 20160205
  59. GANCICLOVIR. [Concomitant]
     Active Substance: GANCICLOVIR
     Indication: CYTOMEGALOVIRUS INFECTION
     Route: 041
     Dates: start: 20160330
  60. SOLYUGEN G [Concomitant]
     Indication: FLUID REPLACEMENT
     Route: 065
     Dates: start: 20160202, end: 20160203
  61. SOLYUGEN G [Concomitant]
     Indication: FLUID REPLACEMENT
     Route: 065
     Dates: start: 20151211, end: 20151218
  62. SOLYUGEN G [Concomitant]
     Indication: FLUID REPLACEMENT
     Route: 065
     Dates: start: 20160314, end: 20160325
  63. PRECEDEX [Concomitant]
     Active Substance: DEXMEDETOMIDINE HYDROCHLORIDE
     Indication: SEDATION
     Route: 065
     Dates: start: 20160205, end: 20160208
  64. SERENACE [Concomitant]
     Active Substance: HALOPERIDOL
     Indication: SEDATION
     Route: 065
     Dates: start: 20160207, end: 20160208
  65. FULCALIQ [Concomitant]
     Active Substance: AMINO ACIDS\CARBOHYDRATES\ELECTROLYTES NOS\VITAMINS
     Indication: FLUID REPLACEMENT
     Route: 065
     Dates: start: 20160303, end: 20160307
  66. BACTRAMIN [Concomitant]
     Active Substance: SULFAMETHOXAZOLE\TRIMETHOPRIM
     Indication: CYTOMEGALOVIRUS INFECTION
     Route: 065
     Dates: start: 20160210, end: 20160220
  67. POLARAMINE [Concomitant]
     Active Substance: DEXCHLORPHENIRAMINE MALEATE
     Indication: ECZEMA
     Route: 065
     Dates: start: 20160326, end: 20160327
  68. METHYLPREDNISOLONE. [Concomitant]
     Active Substance: METHYLPREDNISOLONE
     Indication: ECZEMA
     Route: 065
     Dates: start: 20160314, end: 20160314
  69. ISOTONIC SODIUM CHLORIDE SOLUTION [Concomitant]
     Active Substance: SODIUM CHLORIDE
     Indication: SEDATION
     Route: 065
     Dates: start: 20160201, end: 20160204
  70. ISOTONIC SODIUM CHLORIDE SOLUTION [Concomitant]
     Active Substance: SODIUM CHLORIDE
     Indication: PROPHYLAXIS
     Route: 065
     Dates: start: 20160130, end: 20160130
  71. VANCOMYCIN [Concomitant]
     Active Substance: VANCOMYCIN
     Indication: PNEUMONIA ASPIRATION
     Route: 065
     Dates: start: 20160205, end: 20160208
  72. VANCOMYCIN [Concomitant]
     Active Substance: VANCOMYCIN
     Indication: MENINGITIS BACTERIAL
     Route: 065
     Dates: start: 20160203, end: 20160204
  73. BISOLVON [Concomitant]
     Active Substance: BROMHEXINE HYDROCHLORIDE
     Indication: PNEUMONIA ASPIRATION
     Route: 065
     Dates: start: 20160205, end: 20160218
  74. KCL CORRECTIVE [Concomitant]
     Indication: ELECTROLYTE SUBSTITUTION THERAPY
     Route: 065
     Dates: start: 20160208, end: 20160208
  75. ISENTRESS [Concomitant]
     Active Substance: RALTEGRAVIR POTASSIUM
     Indication: ACQUIRED IMMUNODEFICIENCY SYNDROME
     Route: 048
     Dates: start: 20090620, end: 20160202
  76. ISENTRESS [Concomitant]
     Active Substance: RALTEGRAVIR POTASSIUM
     Indication: ACQUIRED IMMUNODEFICIENCY SYNDROME
     Route: 048
     Dates: start: 20160307
  77. BROTIZOLAM [Concomitant]
     Active Substance: BROTIZOLAM
     Indication: DEPRESSION
     Route: 048
     Dates: start: 20130401, end: 20160202
  78. MUCODYNE [Concomitant]
     Active Substance: CARBOCYSTEINE
     Indication: SPUTUM ABNORMAL
     Route: 048
     Dates: start: 20160218, end: 20160302
  79. LANSOPRAZOLE. [Concomitant]
     Active Substance: LANSOPRAZOLE
     Indication: GASTRITIS PROPHYLAXIS
     Route: 065
     Dates: start: 20160218, end: 20160302
  80. SOLYUGEN G [Concomitant]
     Indication: FLUID REPLACEMENT
     Route: 065
     Dates: start: 20160330
  81. NEOLAMIN [Concomitant]
     Indication: VITAMIN SUPPLEMENTATION
     Route: 065
     Dates: start: 20160202, end: 20160203
  82. BFLUID [Concomitant]
     Active Substance: AMINO ACIDS\DEXTROSE\ELECTROLYTES NOS\VITAMINS
     Indication: FLUID REPLACEMENT
     Route: 065
     Dates: start: 20160314, end: 20160314
  83. SOLU-MEDROL [Concomitant]
     Active Substance: METHYLPREDNISOLONE SODIUM SUCCINATE
     Indication: ECZEMA
     Route: 065
     Dates: start: 20160319, end: 20160319
  84. ISOTONIC SODIUM CHLORIDE SOLUTION [Concomitant]
     Active Substance: SODIUM CHLORIDE
     Indication: SEDATION
     Route: 065
     Dates: start: 20160130, end: 20160130
  85. ISOTONIC SODIUM CHLORIDE SOLUTION [Concomitant]
     Active Substance: SODIUM CHLORIDE
     Indication: SEDATION
     Route: 065
     Dates: start: 20160130, end: 20160131
  86. ISOTONIC SODIUM CHLORIDE SOLUTION [Concomitant]
     Active Substance: SODIUM CHLORIDE
     Indication: SEDATION
     Route: 065
     Dates: start: 20160202, end: 20160208
  87. ISOTONIC SODIUM CHLORIDE SOLUTION [Concomitant]
     Active Substance: SODIUM CHLORIDE
     Indication: PNEUMONIA ASPIRATION
     Route: 065
     Dates: start: 20160130, end: 20160130
  88. ISOTONIC SODIUM CHLORIDE SOLUTION [Concomitant]
     Active Substance: SODIUM CHLORIDE
     Indication: PNEUMONIA ASPIRATION
     Route: 065
     Dates: start: 20160205, end: 20160208
  89. ISOTONIC SODIUM CHLORIDE SOLUTION [Concomitant]
     Active Substance: SODIUM CHLORIDE
     Indication: MENINGITIS BACTERIAL
     Route: 065
     Dates: start: 20160130, end: 20160131
  90. GLYCERIN AND FRUCTOSE [Concomitant]
     Indication: MENINGITIS BACTERIAL
     Route: 065
     Dates: start: 20160201, end: 20160201
  91. VANCOMYCIN [Concomitant]
     Active Substance: VANCOMYCIN
     Indication: PNEUMONIA ASPIRATION
     Route: 065
     Dates: start: 20160203, end: 20160204
  92. VANCOMYCIN [Concomitant]
     Active Substance: VANCOMYCIN
     Indication: MENINGITIS BACTERIAL
     Route: 065
     Dates: start: 20160205, end: 20160208
  93. INTELENCE [Suspect]
     Active Substance: ETRAVIRINE
     Indication: ACQUIRED IMMUNODEFICIENCY SYNDROME
     Route: 048
     Dates: start: 20100515, end: 20160202
  94. NORVIR [Concomitant]
     Active Substance: RITONAVIR
     Indication: ACQUIRED IMMUNODEFICIENCY SYNDROME
     Route: 048
     Dates: start: 20160307
  95. MUCOSTA [Concomitant]
     Active Substance: REBAMIPIDE
     Indication: GASTRITIS PROPHYLAXIS
     Route: 048
     Dates: start: 20160218, end: 20160302
  96. EBASTINE [Concomitant]
     Active Substance: EBASTINE
     Indication: ECZEMA
     Route: 048
     Dates: start: 20160302
  97. PRIMPERAN [Concomitant]
     Active Substance: METOCLOPRAMIDE HYDROCHLORIDE
     Indication: NAUSEA
     Route: 065
     Dates: start: 20160127, end: 20160203
  98. BFLUID [Concomitant]
     Active Substance: AMINO ACIDS\DEXTROSE\ELECTROLYTES NOS\VITAMINS
     Indication: FLUID REPLACEMENT
     Route: 065
     Dates: start: 20160312, end: 20160312
  99. POLARAMINE [Concomitant]
     Active Substance: DEXCHLORPHENIRAMINE MALEATE
     Indication: ECZEMA
     Route: 065
     Dates: start: 20160225, end: 20160225
  100. ISOTONIC SODIUM CHLORIDE SOLUTION [Concomitant]
     Active Substance: SODIUM CHLORIDE
     Indication: SEDATION
     Route: 065
     Dates: start: 20160101, end: 20160102
  101. ISOTONIC SODIUM CHLORIDE SOLUTION [Concomitant]
     Active Substance: SODIUM CHLORIDE
     Indication: SEDATION
     Route: 065
     Dates: start: 20160205, end: 20160208
  102. ISOTONIC SODIUM CHLORIDE SOLUTION [Concomitant]
     Active Substance: SODIUM CHLORIDE
     Indication: PNEUMONIA ASPIRATION
     Route: 065
     Dates: start: 20160205, end: 20160214
  103. ISOTONIC SODIUM CHLORIDE SOLUTION [Concomitant]
     Active Substance: SODIUM CHLORIDE
     Indication: ECZEMA
     Route: 065
     Dates: start: 20160202, end: 20160208
  104. ISOTONIC SODIUM CHLORIDE SOLUTION [Concomitant]
     Active Substance: SODIUM CHLORIDE
     Indication: ECZEMA
     Route: 065
     Dates: start: 20160201, end: 20160204
  105. ISOTONIC SODIUM CHLORIDE SOLUTION [Concomitant]
     Active Substance: SODIUM CHLORIDE
     Indication: PROPHYLAXIS
     Route: 065
     Dates: start: 20160205, end: 20160208
  106. ISOTONIC SODIUM CHLORIDE SOLUTION [Concomitant]
     Active Substance: SODIUM CHLORIDE
     Indication: MENINGITIS BACTERIAL
     Route: 065
     Dates: start: 20160201, end: 20160204
  107. ISOTONIC SODIUM CHLORIDE SOLUTION [Concomitant]
     Active Substance: SODIUM CHLORIDE
     Indication: MENINGITIS BACTERIAL
     Route: 065
     Dates: start: 20160205, end: 20160208
  108. PREZISTA [Concomitant]
     Active Substance: DARUNAVIR ETHANOLATE
     Indication: ACQUIRED IMMUNODEFICIENCY SYNDROME
     Route: 048
     Dates: start: 20160307
  109. HOCHUEKKITO [Concomitant]
     Active Substance: HERBALS
     Indication: MALAISE
     Route: 048
     Dates: start: 20150407, end: 20160202
  110. DEPAS [Concomitant]
     Active Substance: ETIZOLAM
     Indication: DEPRESSION
     Route: 048
     Dates: start: 20151110
  111. BAKTAR [Concomitant]
     Active Substance: SULFAMETHOXAZOLE\TRIMETHOPRIM
     Indication: PROPHYLAXIS
     Route: 048
     Dates: start: 20160220, end: 20160221
  112. PRIMPERAN [Concomitant]
     Active Substance: METOCLOPRAMIDE HYDROCHLORIDE
     Indication: NAUSEA
     Route: 065
     Dates: start: 20160318
  113. SOLACET F [Concomitant]
     Indication: FLUID REPLACEMENT
     Route: 065
     Dates: start: 20151210, end: 20151211
  114. BFLUID [Concomitant]
     Active Substance: AMINO ACIDS\DEXTROSE\ELECTROLYTES NOS\VITAMINS
     Indication: FLUID REPLACEMENT
     Route: 065
     Dates: start: 20160311, end: 20160311
  115. FULCALIQ [Concomitant]
     Active Substance: AMINO ACIDS\CARBOHYDRATES\ELECTROLYTES NOS\VITAMINS
     Indication: FLUID REPLACEMENT
     Route: 065
     Dates: start: 20160208, end: 20160208
  116. BACTRAMIN [Concomitant]
     Active Substance: SULFAMETHOXAZOLE\TRIMETHOPRIM
     Indication: CYTOMEGALOVIRUS INFECTION
     Route: 065
     Dates: start: 20160209, end: 20160209
  117. METHYLPREDNISOLONE. [Concomitant]
     Active Substance: METHYLPREDNISOLONE
     Indication: ECZEMA
     Route: 065
     Dates: start: 20160302, end: 20160302
  118. PRODIF [Concomitant]
     Active Substance: FOSFLUCONAZOLE
     Indication: PROPHYLAXIS
     Route: 065
     Dates: start: 20160208, end: 20160218
  119. ISOTONIC SODIUM CHLORIDE SOLUTION [Concomitant]
     Active Substance: SODIUM CHLORIDE
     Indication: ECZEMA
     Route: 065
     Dates: start: 20160205, end: 20160214
  120. ISOTONIC SODIUM CHLORIDE SOLUTION [Concomitant]
     Active Substance: SODIUM CHLORIDE
     Indication: PROPHYLAXIS
     Route: 065
     Dates: start: 20160101, end: 20160102
  121. ISOTONIC SODIUM CHLORIDE SOLUTION [Concomitant]
     Active Substance: SODIUM CHLORIDE
     Indication: MENINGITIS BACTERIAL
     Route: 065
     Dates: start: 20160130, end: 20160130
  122. SOLYUGEN G [Concomitant]
     Indication: FLUID REPLACEMENT
     Route: 065
     Dates: start: 20160202, end: 20160202
  123. SOLYUGEN G [Concomitant]
     Indication: FLUID REPLACEMENT
     Route: 065
     Dates: start: 20160127, end: 20160203
  124. PENTAZOCINE HYDROCHLORIDE [Concomitant]
     Active Substance: PENTAZOCINE HYDROCHLORIDE
     Indication: MENINGITIS BACTERIAL
     Route: 065
     Dates: start: 20160130, end: 20160130
  125. GLYCERIN AND FRUCTOSE [Concomitant]
     Indication: MENINGITIS BACTERIAL
     Route: 065
     Dates: start: 20160202, end: 20160204
  126. VANCOMYCIN [Concomitant]
     Active Substance: VANCOMYCIN
     Indication: PNEUMONIA ASPIRATION
     Route: 065
     Dates: start: 20160209, end: 20160214
  127. VANCOMYCIN [Concomitant]
     Active Substance: VANCOMYCIN
     Indication: PNEUMONIA ASPIRATION
     Route: 065
     Dates: start: 20160208, end: 20160208
  128. ESLAX [Concomitant]
     Active Substance: ROCURONIUM BROMIDE
     Indication: PNEUMONIA ASPIRATION
     Route: 065
     Dates: start: 20160204, end: 20160204
  129. NONTHRON [Concomitant]
     Indication: ANTITHROMBIN III DECREASED
     Route: 065
     Dates: start: 20160204, end: 20160204
  130. GABEXATE MESILATE [Concomitant]
     Active Substance: GABEXATE MESYLATE
     Indication: PANCREATITIS
     Route: 065
     Dates: start: 20160208, end: 20160302

REACTIONS (5)
  - Pancreatitis [Not Recovered/Not Resolved]
  - Antithrombin III decreased [Recovered/Resolved]
  - Pneumonia aspiration [Recovered/Resolved]
  - Diarrhoea [Recovered/Resolved]
  - Meningitis bacterial [Not Recovered/Not Resolved]

NARRATIVE: CASE EVENT DATE: 20160104
